FAERS Safety Report 9537768 (Version 1)
Quarter: 2013Q3

REPORT INFORMATION
  Report Type: Spontaneous
  Country: US (occurrence: US)
  Receive Date: 20130919
  Receipt Date: 20130919
  Transmission Date: 20140515
  Serious: Yes (Other)
  Sender: FDA-Public Use
  Company Number: US-009507513-1309USA007405

PATIENT
  Age: 18 Year
  Sex: Female

DRUGS (1)
  1. IMPLANON [Suspect]
     Indication: CONTRACEPTION
     Dosage: UNK
     Route: 059
     Dates: start: 201201, end: 2013

REACTIONS (6)
  - Cervix carcinoma [Unknown]
  - Menstruation irregular [Unknown]
  - Menorrhagia [Unknown]
  - Asthenia [Unknown]
  - Chlamydial infection [Unknown]
  - Amenorrhoea [Unknown]
